FAERS Safety Report 5490862-1 (Version None)
Quarter: 2007Q4

REPORT INFORMATION
  Report Type: 
  Country: None (occurrence: None)
  Receive Date: 20071019
  Receipt Date: 20071011
  Transmission Date: 20080405
  Serious: Yes (Other)
  Sender: FDA-Public Use
  Company Number: GB-PURDUE-GBR_2007_0003352

PATIENT
  Sex: Female
  Weight: 3 kg

DRUGS (1)
  1. MORPHINE SULFATE [Suspect]
     Indication: LABOUR PAIN
     Route: 064

REACTIONS (4)
  - APGAR SCORE LOW [None]
  - DRUG EXPOSURE DURING PREGNANCY [None]
  - RESPIRATORY DEPRESSION [None]
  - SOMNOLENCE NEONATAL [None]
